FAERS Safety Report 8567509-0 (Version None)
Quarter: 2012Q3

REPORT INFORMATION
  Report Type: 
  Country: None (occurrence: None)
  Receive Date: 20120803
  Receipt Date: 20120720
  Transmission Date: 20120928
  Serious: Yes (Hospitalization, Other)
  Sender: FDA-Public Use
  Company Number: US-ACTELION-A-NJ2008-20703

PATIENT
  Age: 85 Year
  Sex: Male
  Weight: 69.841 kg

DRUGS (15)
  1. DYAZIDE [Concomitant]
  2. LIPITOR [Concomitant]
  3. ZITHROMAX [Concomitant]
  4. TRACLEER [Suspect]
     Indication: PULMONARY HYPERTENSION
     Dosage: 125 MG, BID
     Route: 048
     Dates: start: 20040130
  5. LUMIGAN [Concomitant]
  6. CARDIZEM [Concomitant]
  7. PRILOSEC [Concomitant]
  8. BACTRIM [Concomitant]
  9. SPIRIVA [Concomitant]
  10. LEVAQUIN [Concomitant]
  11. OXYGEN [Concomitant]
  12. VIAGRA [Concomitant]
  13. CENTRUM [Concomitant]
  14. AZOPT [Concomitant]
  15. HYDROCODONE BITARTRATE AND ACETAMINOPHEN [Concomitant]

REACTIONS (9)
  - PYREXIA [None]
  - FATIGUE [None]
  - COUGH [None]
  - DIZZINESS [None]
  - DYSPNOEA [None]
  - RENAL FAILURE ACUTE [None]
  - PNEUMONIA [None]
  - PULMONARY HYPERTENSION [None]
  - LOWER RESPIRATORY TRACT INFECTION [None]
